FAERS Safety Report 10758710 (Version 1)
Quarter: 2015Q1

REPORT INFORMATION
  Report Type: Spontaneous
  Country: US (occurrence: US)
  Receive Date: 20150203
  Receipt Date: 20150203
  Transmission Date: 20150721
  Serious: No
  Sender: FDA-Public Use
  Company Number: US-BAYER-2015-012631

PATIENT
  Age: 59 Year
  Sex: Female

DRUGS (1)
  1. CLIMARA PRO [Suspect]
     Active Substance: ESTRADIOL\LEVONORGESTREL
     Indication: MENOPAUSAL SYMPTOMS
     Route: 062

REACTIONS (5)
  - Inappropriate schedule of drug administration [None]
  - Wrong technique in drug usage process [None]
  - Breast tenderness [None]
  - Depression [Recovered/Resolved]
  - Hot flush [None]
